FAERS Safety Report 24305006 (Version 1)
Quarter: 2024Q3

REPORT INFORMATION
  Report Type: Spontaneous
  Country: CN (occurrence: CN)
  Receive Date: 20240911
  Receipt Date: 20240911
  Transmission Date: 20241016
  Serious: Yes (Hospitalization, Other)
  Sender: Haleon PLC
  Company Number: CN-HALEON-2194822

PATIENT
  Age: 26 Year
  Sex: Female

DRUGS (1)
  1. IBUPROFEN [Suspect]
     Active Substance: IBUPROFEN
     Indication: Product used for unknown indication
     Route: 048
     Dates: start: 20240826, end: 20240826

REACTIONS (7)
  - Photophobia [Unknown]
  - Discoloured vomit [Unknown]
  - Overdose [Unknown]
  - Toxicity to various agents [Unknown]
  - Abdominal tenderness [Unknown]
  - Gastric mucosal lesion [Unknown]
  - Heart sounds abnormal [Unknown]

NARRATIVE: CASE EVENT DATE: 20240826
